FAERS Safety Report 10503778 (Version 1)
Quarter: 2014Q4

REPORT INFORMATION
  Report Type: Spontaneous
  Country: US (occurrence: None)
  Receive Date: 20141007
  Receipt Date: 20141007
  Transmission Date: 20150528
  Serious: Yes (Other)
  Sender: FDA-Public Use
  Company Number: None

PATIENT
  Age: 64 Year
  Sex: Female

DRUGS (2)
  1. HUMIRA [Suspect]
     Active Substance: ADALIMUMAB
     Indication: RHEUMATOID ARTHRITIS
     Route: 058
     Dates: start: 20140730
  2. HUMIRA [Suspect]
     Active Substance: ADALIMUMAB
     Indication: ENTERITIS
     Route: 058
     Dates: start: 20140730

REACTIONS (1)
  - Alopecia [None]

NARRATIVE: CASE EVENT DATE: 20140920
